FAERS Safety Report 18134485 (Version 1)
Quarter: 2020Q3

REPORT INFORMATION
  Report Type: Spontaneous
  Country: US (occurrence: US)
  Receive Date: 20200810
  Receipt Date: 20200810
  Transmission Date: 20201103
  Serious: No
  Sender: FDA-Public Use
  Company Number: None

PATIENT
  Sex: Male

DRUGS (1)
  1. VALGANCICLOVIR 450MG PAR PHARMACEUTICALS [Suspect]
     Active Substance: VALGANCICLOVIR
     Indication: HIV INFECTION
     Route: 048
     Dates: start: 202002

REACTIONS (2)
  - Confusional state [None]
  - Night sweats [None]
